FAERS Safety Report 9940958 (Version 1)
Quarter: 2014Q1

REPORT INFORMATION
  Report Type: Spontaneous
  Country: US (occurrence: US)
  Receive Date: 20140303
  Receipt Date: 20140303
  Transmission Date: 20141002
  Serious: Yes (Hospitalization)
  Sender: FDA-Public Use
  Company Number: US-JNJFOC-20140214128

PATIENT
  Sex: Female

DRUGS (2)
  1. INVEGA [Suspect]
     Indication: PRODUCT USED FOR UNKNOWN INDICATION
     Route: 048
  2. NORVASC [Suspect]
     Indication: BLOOD PRESSURE
     Route: 065
     Dates: start: 201402

REACTIONS (3)
  - Coma [Not Recovered/Not Resolved]
  - Hypertension [Not Recovered/Not Resolved]
  - Treatment noncompliance [Unknown]
